FAERS Safety Report 22352347 (Version 11)
Quarter: 2024Q2

REPORT INFORMATION
  Report Type: Report from Study
  Country: CO (occurrence: CO)
  Receive Date: 20230522
  Receipt Date: 20240509
  Transmission Date: 20240716
  Serious: Yes (Other)
  Sender: FDA-Public Use
  Company Number: CO-TAKEDA-2023TUS050402

PATIENT
  Age: 16 Year
  Sex: Male
  Weight: 71 kg

DRUGS (3)
  1. HUMAN IMMUNOGLOBULIN G\HYALURONIDASE RECOMBINANT HUMAN [Suspect]
     Active Substance: HUMAN IMMUNOGLOBULIN G\HYALURONIDASE (HUMAN RECOMBINANT)
     Indication: Primary immunodeficiency syndrome
     Dosage: 30 GRAM, MONTHLY
     Route: 058
     Dates: start: 20211002
  2. HUMAN IMMUNOGLOBULIN G\HYALURONIDASE RECOMBINANT HUMAN [Suspect]
     Active Substance: HUMAN IMMUNOGLOBULIN G\HYALURONIDASE (HUMAN RECOMBINANT)
     Dosage: 35 GRAM, MONTHLY
     Route: 058
     Dates: start: 20240322
  3. HUMAN IMMUNOGLOBULIN G\HYALURONIDASE RECOMBINANT HUMAN [Suspect]
     Active Substance: HUMAN IMMUNOGLOBULIN G\HYALURONIDASE (HUMAN RECOMBINANT)
     Dosage: 30 GRAM, MONTHLY
     Route: 058

REACTIONS (17)
  - Drug abuse [Unknown]
  - Wrist fracture [Recovering/Resolving]
  - Anger [Unknown]
  - Treatment noncompliance [Unknown]
  - Anxiety [Unknown]
  - Fall [Recovering/Resolving]
  - Skin laceration [Recovering/Resolving]
  - Body height increased [Unknown]
  - Weight increased [Unknown]
  - Cough [Unknown]
  - Pain in extremity [Recovering/Resolving]
  - Rash [Recovering/Resolving]
  - Product availability issue [Unknown]
  - Product distribution issue [Unknown]
  - Product administration error [Unknown]
  - Inappropriate schedule of product administration [Unknown]
  - Product dose omission issue [Unknown]

NARRATIVE: CASE EVENT DATE: 20230514
